FAERS Safety Report 11097181 (Version 1)
Quarter: 2015Q2

REPORT INFORMATION
  Report Type: Spontaneous
  Country: US (occurrence: US)
  Receive Date: 20150507
  Receipt Date: 20150507
  Transmission Date: 20150821
  Serious: No
  Sender: FDA-Public Use
  Company Number: US-ELI_LILLY_AND_COMPANY-US201504003759

PATIENT
  Sex: Female

DRUGS (3)
  1. BUMETANIDE. [Concomitant]
     Active Substance: BUMETANIDE
  2. OPSUMIT [Concomitant]
     Active Substance: MACITENTAN
  3. ADCIRCA [Suspect]
     Active Substance: TADALAFIL
     Indication: PRODUCT USED FOR UNKNOWN INDICATION
     Dosage: 40 MG, QD
     Route: 065

REACTIONS (4)
  - Abdominal pain upper [Not Recovered/Not Resolved]
  - Bone pain [Not Recovered/Not Resolved]
  - Swelling [Not Recovered/Not Resolved]
  - Dyspnoea [Not Recovered/Not Resolved]
